FAERS Safety Report 25472017 (Version 1)
Quarter: 2025Q2

REPORT INFORMATION
  Report Type: Report from Study
  Country: DE (occurrence: DE)
  Receive Date: 20250624
  Receipt Date: 20250624
  Transmission Date: 20250717
  Serious: Yes (Hospitalization)
  Sender: ROCHE
  Company Number: DE-ROCHE-10000317680

PATIENT
  Age: 18 Year
  Sex: Male
  Weight: 76 kg

DRUGS (3)
  1. TOCILIZUMAB [Suspect]
     Active Substance: TOCILIZUMAB
     Indication: Juvenile idiopathic arthritis
     Route: 058
     Dates: start: 20240213
  2. PREDNISOLONE [Concomitant]
     Active Substance: PREDNISOLONE
     Route: 048
  3. IBUPROFEN [Concomitant]
     Active Substance: IBUPROFEN

REACTIONS (1)
  - Juvenile idiopathic arthritis [Recovered/Resolved]

NARRATIVE: CASE EVENT DATE: 20250115
